FAERS Safety Report 18380116 (Version 2)
Quarter: 2020Q4

REPORT INFORMATION
  Report Type: Report from Study
  Country: None (occurrence: CA)
  Receive Date: 20201014
  Receipt Date: 20201015
  Transmission Date: 20210114
  Serious: Yes (Hospitalization, Other)
  Sender: FDA-Public Use
  Company Number: CA-ABBVIE-20K-028-3603981-00

PATIENT
  Sex: Male

DRUGS (1)
  1. HUMIRA [Suspect]
     Active Substance: ADALIMUMAB
     Indication: RHEUMATOID ARTHRITIS
     Route: 058
     Dates: start: 20101209

REACTIONS (10)
  - Concussion [Unknown]
  - Musculoskeletal disorder [Not Recovered/Not Resolved]
  - Fall [Not Recovered/Not Resolved]
  - Internal haemorrhage [Unknown]
  - Upper limb fracture [Unknown]
  - Contusion [Not Recovered/Not Resolved]
  - Foot amputation [Not Recovered/Not Resolved]
  - Balance disorder [Not Recovered/Not Resolved]
  - Rheumatoid arthritis [Not Recovered/Not Resolved]
  - Post-traumatic neck syndrome [Unknown]

NARRATIVE: CASE EVENT DATE: 2020
